FAERS Safety Report 19434168 (Version 1)
Quarter: 2021Q2

REPORT INFORMATION
  Report Type: Spontaneous
  Country: US (occurrence: US)
  Receive Date: 20210617
  Receipt Date: 20210617
  Transmission Date: 20210717
  Serious: No
  Sender: FDA-Public Use
  Company Number: US-ROCHE-2573864

PATIENT
  Age: 83 Year
  Sex: Female
  Weight: 68.1 kg

DRUGS (9)
  1. PREDNISONE. [Concomitant]
     Active Substance: PREDNISONE
     Indication: GIANT CELL ARTERITIS
     Route: 048
     Dates: start: 2019
  2. METHYLPREDNISOLONE. [Concomitant]
     Active Substance: METHYLPREDNISOLONE
     Indication: GIANT CELL ARTERITIS
     Route: 048
  3. TRIAMTERENE/HYDROCHLOROTHIAZIDE [Concomitant]
     Active Substance: HYDROCHLOROTHIAZIDE\TRIAMTERENE
     Dosage: 37.5/25 MG
     Route: 048
  4. PANTOPRAZOLE SODIUM. [Concomitant]
     Active Substance: PANTOPRAZOLE SODIUM
     Route: 048
  5. ACTEMRA [Suspect]
     Active Substance: TOCILIZUMAB
     Indication: GIANT CELL ARTERITIS
     Dosage: STRENGTH; 162 MG/0.9 ML ;ONGOING: YES
     Route: 058
     Dates: start: 20200306
  6. ACTEMRA [Suspect]
     Active Substance: TOCILIZUMAB
     Dosage: STRENGTH; 162 MG/0.9 ML ;ONGOING: YES
     Route: 058
     Dates: start: 20200407
  7. ASPIRIN. [Concomitant]
     Active Substance: ASPIRIN
     Route: 048
  8. PRAVASTATIN. [Concomitant]
     Active Substance: PRAVASTATIN
     Indication: BLOOD CHOLESTEROL INCREASED
     Route: 048
  9. BEOVU [Concomitant]
     Active Substance: BROLUCIZUMAB-DBLL
     Indication: MACULAR DEGENERATION
     Dates: start: 2020

REACTIONS (10)
  - Haemoptysis [Recovered/Resolved]
  - Epistaxis [Recovered/Resolved]
  - Gingival bleeding [Unknown]
  - Fatigue [Unknown]
  - Exposure via skin contact [Recovered/Resolved]
  - Device malfunction [Unknown]
  - Fatigue [Not Recovered/Not Resolved]
  - Needle issue [Unknown]
  - Product quality issue [Unknown]
  - Joint swelling [Unknown]

NARRATIVE: CASE EVENT DATE: 20200307
